FAERS Safety Report 8088620-7 (Version None)
Quarter: 2012Q1

REPORT INFORMATION
  Report Type: 
  Country: None (occurrence: None)
  Receive Date: 20120128
  Receipt Date: 20110420
  Transmission Date: 20120608
  Serious: No
  Sender: FDA-Public Use
  Company Number: US-ABBOTT-11P-163-0720552-00

PATIENT
  Age: 56 Year
  Sex: Female

DRUGS (12)
  1. ZOLPIDEM [Concomitant]
     Indication: INSOMNIA
     Dosage: 10 MG AT BEDTIME
  2. LISINOPRIL [Concomitant]
     Indication: HYPERTENSION
     Dosage: DAILY
  3. CYMBALTA [Concomitant]
     Indication: DEPRESSION
  4. FAMOTIDINE [Concomitant]
     Indication: GASTROOESOPHAGEAL REFLUX DISEASE
  5. BYSTOLIC [Concomitant]
     Indication: HYPERTENSION
  6. LORAZEPAM [Concomitant]
     Indication: ANXIETY
  7. INHALER [Concomitant]
     Indication: ASTHMA
     Route: 055
  8. LASIX [Concomitant]
     Indication: SWELLING
     Dosage: PRN
  9. UNKNOWN MEDICATION [Concomitant]
     Indication: PRURITUS
  10. HUMIRA [Suspect]
     Indication: ANKYLOSING SPONDYLITIS
     Dates: start: 20110101
  11. FLEXERIL [Concomitant]
     Indication: MUSCLE SPASMS
  12. NITROGLYCERIN [Concomitant]
     Indication: CHEST PAIN
     Route: 060

REACTIONS (3)
  - OEDEMA PERIPHERAL [None]
  - INJECTION SITE PAIN [None]
  - ELECTROCARDIOGRAM ABNORMAL [None]
